FAERS Safety Report 20817821 (Version 1)
Quarter: 2022Q2

REPORT INFORMATION
  Report Type: Report from Study
  Country: RU (occurrence: RU)
  Receive Date: 20220512
  Receipt Date: 20220512
  Transmission Date: 20220721
  Serious: Yes (Hospitalization, Other)
  Sender: FDA-Public Use
  Company Number: RU-SNT-000275

PATIENT
  Age: 28 Year
  Sex: Male

DRUGS (5)
  1. PAROXETINE [Suspect]
     Active Substance: PAROXETINE
     Indication: Depression
     Dosage: 20 MG
     Route: 065
  2. BISOPROLOL [Concomitant]
     Active Substance: BISOPROLOL
     Indication: Cardiac failure congestive
     Dosage: UP TO 5 MG/DAY
     Route: 065
  3. TORSEMIDE [Concomitant]
     Active Substance: TORSEMIDE
     Indication: Cardiac failure congestive
     Dosage: 5 MG
     Route: 065
  4. SPIRONOLACTONE [Concomitant]
     Active Substance: SPIRONOLACTONE
     Indication: Cardiac failure congestive
     Dosage: 25 MG
     Route: 065
  5. LAPPACONITINE HYDROBROMIDE [Concomitant]
     Indication: Supraventricular extrasystoles
     Dosage: 75 MG
     Route: 065

REACTIONS (14)
  - Restrictive cardiomyopathy [Unknown]
  - Cardiac failure congestive [Unknown]
  - Hydrothorax [Unknown]
  - Ascites [Unknown]
  - Skin hyperpigmentation [Unknown]
  - Hepatomegaly [Unknown]
  - Haemochromatosis [Unknown]
  - Haemosiderosis [Unknown]
  - Haemoglobin increased [Unknown]
  - Atrioventricular block complete [Unknown]
  - Liver function test increased [Unknown]
  - Visual impairment [Unknown]
  - Drug-induced liver injury [Unknown]
  - Gene mutation [Unknown]
